FAERS Safety Report 4524503-4 (Version None)
Quarter: 2005Q1

REPORT INFORMATION
  Report Type: 
  Country: None (occurrence: None)
  Receive Date: 20041117
  Receipt Date: 20031125
  Transmission Date: 20050727
  Serious: Yes (Death)
  Sender: FDA-Public Use
  Company Number: US-JNJFOC-20031200747

PATIENT
  Age: 81 Year
  Sex: 0

DRUGS (3)
  1. LEVAQUIN [Suspect]
     Indication: URINARY TRACT INFECTION
     Dosage: 500 MG, 1 IN 1 DAY,
  2. LEVAQUIN [Suspect]
     Indication: UROSEPSIS
     Dosage: 500 MG, 1 IN 1 DAY,
  3. COUMADIN [Concomitant]

REACTIONS (3)
  - LEUKOPENIA [None]
  - NEUTROPENIA [None]
  - PETECHIAE [None]
